FAERS Safety Report 9478223 (Version 3)
Quarter: 2013Q3

REPORT INFORMATION
  Report Type: Spontaneous
  Country: JP (occurrence: None)
  Receive Date: 20130807
  Receipt Date: 20130829
  Transmission Date: 20140515
  Serious: Yes (Hospitalization)
  Sender: FDA-Public Use
  Company Number: 0240652

PATIENT
  Age: 53 Year
  Sex: Male

DRUGS (8)
  1. TACHOSIL (HUMAN FIBRINOGEN, HUMAN THROMBIN) (POULTICE OR PATCH) (HUMAN FIBRINOGEN, HUMAN THROMBIN) [Suspect]
     Indication: HAEMOSTASIS
     Dosage: (2 SHEETS /1DAY)
     Route: 050
     Dates: start: 20130525
  2. NICORANDIL (NICORANDIL) [Concomitant]
  3. NICARPINE (NICARDIPINE HYDROCHLORIDE) [Concomitant]
  4. RED CELL CONCENTRATED (RED BLOOD CELLS) [Concomitant]
  5. PLATELET CONCENTRATED (DIPYRIDAMOLE) [Concomitant]
  6. FESH FROZEN PLASMA (PLAZMA PROTEIN FRACTION (HUMAN)) [Concomitant]
  7. DRIED FIBRINOGEN /FACTOR I (FIBRINOGEN)) [Concomitant]
  8. FIBRIN GLUE SPRAY/SPRAY (NOT INHALATION) [Concomitant]

REACTIONS (3)
  - Pneumonia aspiration [None]
  - Renal impairment [None]
  - Dialysis [None]
